FAERS Safety Report 8188293-9 (Version None)
Quarter: 2012Q1

REPORT INFORMATION
  Report Type: 
  Country: None (occurrence: None)
  Receive Date: 20120306
  Receipt Date: 20120223
  Transmission Date: 20120608
  Serious: Yes (Hospitalization)
  Sender: FDA-Public Use
  Company Number: CA-ELI_LILLY_AND_COMPANY-CA201202002882

PATIENT
  Age: 87 Year
  Sex: Female

DRUGS (21)
  1. ADVAIR DISKUS 100/50 [Concomitant]
  2. FUROSEMIDE [Concomitant]
  3. ZANTAC [Concomitant]
  4. PREMARIN [Concomitant]
  5. VENTOLIN [Concomitant]
  6. RANITIDINE [Concomitant]
  7. CO ATORVASTATIN [Concomitant]
  8. NOVO VENLAFAXINE [Concomitant]
  9. VITAMIN B-12 [Concomitant]
  10. VITAMIN D [Concomitant]
  11. ENABLEX                            /01760401/ [Concomitant]
  12. CALCIUM [Concomitant]
  13. HEMORRHOID [Concomitant]
  14. ALTRIM [Concomitant]
  15. SYNTHROID [Concomitant]
  16. PREVISON [Concomitant]
  17. NEXIUM [Concomitant]
  18. FORTEO [Suspect]
     Indication: OSTEOPOROSIS
     Dosage: 20 UG, QD
     Route: 058
     Dates: start: 20050923
  19. TRAMADOL HCL [Concomitant]
  20. FORTEO [Suspect]
     Dosage: 20 UG, QD
     Route: 058
     Dates: start: 20120203
  21. MANDELAMINE [Concomitant]

REACTIONS (6)
  - VOMITING [None]
  - GASTROINTESTINAL HAEMORRHAGE [None]
  - MALAISE [None]
  - NAUSEA [None]
  - DYSPEPSIA [None]
  - HAEMATEMESIS [None]
